FAERS Safety Report 6306585-2 (Version None)
Quarter: 2009Q3

REPORT INFORMATION
  Report Type: 
  Country: None (occurrence: None)
  Receive Date: 20090812
  Receipt Date: 20090731
  Transmission Date: 20100115
  Serious: Yes (Hospitalization)
  Sender: FDA-Public Use
  Company Number: A0799940A

PATIENT
  Sex: Female
  Weight: 53 kg

DRUGS (4)
  1. LAPATINIB [Suspect]
     Indication: NEOPLASM
     Route: 048
     Dates: start: 20081218, end: 20090730
  2. CAPECITABINE [Suspect]
     Indication: NEOPLASM
     Dosage: 2000MGM2 TWICE PER DAY
     Route: 048
     Dates: start: 20090205
  3. BENPROPERINE [Concomitant]
     Dosage: 200MG THREE TIMES PER DAY
     Route: 048
     Dates: start: 20090727, end: 20090101
  4. SULTAMICILLIN TOSYLATE [Concomitant]
     Dosage: 375MG THREE TIMES PER DAY
     Route: 048
     Dates: start: 20090727, end: 20090729

REACTIONS (1)
  - PYREXIA [None]
